FAERS Safety Report 5147787-0 (Version None)
Quarter: 2006Q4

REPORT INFORMATION
  Report Type: 
  Country: None (occurrence: None)
  Receive Date: 20061110
  Receipt Date: 20061031
  Transmission Date: 20070319
  Serious: Yes (Hospitalization)
  Sender: FDA-Public Use
  Company Number: PHRM2006FR02970

PATIENT
  Sex: Male

DRUGS (3)
  1. LEPONEX [Suspect]
     Dosage: UNK, UNK
     Route: 048
     Dates: start: 19960101, end: 20010401
  2. DEPAKENE [Concomitant]
     Indication: EPILEPSY
     Route: 048
  3. NOZINAN /00038602/ [Concomitant]
     Route: 048

REACTIONS (4)
  - ANAEMIA [None]
  - LUNG ABSCESS [None]
  - NEUTROPENIA [None]
  - THROMBOCYTOPENIA [None]
